FAERS Safety Report 16474442 (Version 3)
Quarter: 2019Q3

REPORT INFORMATION
  Report Type: Spontaneous
  Country: US (occurrence: US)
  Receive Date: 20190625
  Receipt Date: 20190712
  Transmission Date: 20191004
  Serious: No
  Sender: FDA-Public Use
  Company Number: US-SUNOVION-2019SUN002447

PATIENT
  Age: 87 Year
  Sex: Female
  Weight: 68.03 kg

DRUGS (7)
  1. BROVANA [Suspect]
     Active Substance: ARFORMOTEROL TARTRATE
     Indication: CHRONIC OBSTRUCTIVE PULMONARY DISEASE
  2. YUPELRI [Concomitant]
     Active Substance: REVEFENACIN
     Dosage: UNK, QD
  3. PREDNISONE. [Suspect]
     Active Substance: PREDNISONE
     Dosage: 5 MG
     Route: 065
     Dates: start: 20190706, end: 20190708
  4. OXYGEN. [Concomitant]
     Active Substance: OXYGEN
     Dosage: 5 L, QD
  5. ALBUTEROL. [Concomitant]
     Active Substance: ALBUTEROL
     Dosage: UNK, BID
  6. BROVANA [Suspect]
     Active Substance: ARFORMOTEROL TARTRATE
     Indication: EMPHYSEMA
     Dosage: 5MCG/2ML, BID (AT 7AM AND 7PM)
     Route: 055
     Dates: start: 20190601
  7. LISINOPRIL. [Concomitant]
     Active Substance: LISINOPRIL
     Indication: BLOOD PRESSURE ABNORMAL
     Dosage: 40 MG, QD (AT 9AM)

REACTIONS (12)
  - Nervousness [Not Recovered/Not Resolved]
  - Peripheral swelling [Unknown]
  - Muscle spasms [Recovering/Resolving]
  - Dry eye [Not Recovered/Not Resolved]
  - Feeling abnormal [Not Recovered/Not Resolved]
  - Anxiety [Not Recovered/Not Resolved]
  - Hypoaesthesia [Recovering/Resolving]
  - Faeces discoloured [Unknown]
  - Vision blurred [Not Recovered/Not Resolved]
  - Eye irritation [Not Recovered/Not Resolved]
  - Fatigue [Not Recovered/Not Resolved]
  - Somnolence [Unknown]

NARRATIVE: CASE EVENT DATE: 201906
